FAERS Safety Report 17874742 (Version 2)
Quarter: 2020Q2

REPORT INFORMATION
  Report Type: Spontaneous
  Country: JP (occurrence: JP)
  Receive Date: 20200609
  Receipt Date: 20200612
  Transmission Date: 20200714
  Serious: Yes (Other)
  Sender: FDA-Public Use
  Company Number: NVSJ2020JP005638

PATIENT
  Age: 85 Year
  Sex: Male
  Weight: 65 kg

DRUGS (1)
  1. JADENU [Suspect]
     Active Substance: DEFERASIROX
     Indication: IRON OVERLOAD
     Route: 048

REACTIONS (1)
  - Lenticular opacities [Recovered/Resolved]
